FAERS Safety Report 17729362 (Version 1)
Quarter: 2020Q2

REPORT INFORMATION
  Report Type: Spontaneous
  Country: CA (occurrence: CA)
  Receive Date: 20200430
  Receipt Date: 20200430
  Transmission Date: 20200714
  Serious: Yes (Hospitalization, Other)
  Sender: FDA-Public Use
  Company Number: CA-GILEAD-2019-0442758

PATIENT
  Age: 21 Year
  Sex: Male
  Weight: 75 kg

DRUGS (4)
  1. YESCARTA [Suspect]
     Active Substance: AXICABTAGENE CILOLEUCEL
     Indication: PRIMARY MEDIASTINAL LARGE B-CELL LYMPHOMA
     Dosage: UNK, ONCE
     Route: 042
     Dates: start: 20191204, end: 20191204
  2. XARELTO [Concomitant]
     Active Substance: RIVAROXABAN
  3. VALTREX [Concomitant]
     Active Substance: VALACYCLOVIR HYDROCHLORIDE
  4. SEPTRA DS [Concomitant]
     Active Substance: SULFAMETHOXAZOLE\TRIMETHOPRIM

REACTIONS (12)
  - Confusional state [Recovering/Resolving]
  - Intensive care [Recovered/Resolved]
  - Asthenia [Recovering/Resolving]
  - Pyrexia [Recovered/Resolved]
  - Limb discomfort [Unknown]
  - Pyrexia [Recovered/Resolved]
  - Neurotoxicity [Not Recovered/Not Resolved]
  - Hypotension [Recovered/Resolved]
  - Aphasia [Recovering/Resolving]
  - Headache [Unknown]
  - Hypoaesthesia [Recovering/Resolving]
  - Cytokine release syndrome [Unknown]

NARRATIVE: CASE EVENT DATE: 201912
